FAERS Safety Report 8995740 (Version 1)
Quarter: 2013Q1

REPORT INFORMATION
  Report Type: Spontaneous
  Country: US (occurrence: US)
  Receive Date: 20130103
  Receipt Date: 20130103
  Transmission Date: 20140127
  Serious: Yes (Hospitalization)
  Sender: FDA-Public Use
  Company Number: US-B.I. PHARMACEUTICALS,INC./RIDGEFIELD-2012-BI-04649BP

PATIENT
  Age: 78 None
  Sex: Female
  Weight: 77 kg

DRUGS (18)
  1. PRADAXA [Suspect]
     Indication: ATRIAL FIBRILLATION
     Dosage: 300 MG
     Route: 048
     Dates: start: 201112
  2. ESTROPIPATE [Concomitant]
     Indication: HORMONE REPLACEMENT THERAPY
     Route: 048
     Dates: start: 1980
  3. PHENOBARBITOL [Concomitant]
     Indication: CONVULSION
     Dosage: 129.6 MG
     Route: 048
     Dates: start: 1992
  4. DIAZEPAM [Concomitant]
     Indication: PANIC ATTACK
     Route: 048
     Dates: start: 201201
  5. POTASSIUM CHLORIDE [Concomitant]
     Indication: SUPPLEMENTATION THERAPY
     Dosage: 10 MEQ
     Route: 048
     Dates: start: 2007
  6. OXAZEPAM [Concomitant]
     Indication: CONVULSION
     Dosage: 30 MG
     Route: 048
     Dates: start: 1992
  7. HYDRALAZINE [Concomitant]
     Indication: HYPERTENSION
     Dosage: 75 MG
     Route: 048
     Dates: start: 201211
  8. TRAMADOL [Concomitant]
     Indication: ARTHRALGIA
     Route: 048
     Dates: start: 201112
  9. LOSARTAN [Concomitant]
     Indication: HYPERTENSION
     Dosage: 100 MG
     Route: 048
     Dates: start: 2010
  10. LOVASTATIN [Concomitant]
     Indication: BLOOD CHOLESTEROL INCREASED
     Dosage: 20 MG
     Route: 048
     Dates: start: 201206
  11. HYDROCLORATHIAZIDE [Concomitant]
     Indication: OEDEMA
     Dosage: 25 MG
     Route: 048
     Dates: start: 2007
  12. HYDROCLORATHIAZIDE [Concomitant]
     Indication: CARDIAC FAILURE CONGESTIVE
  13. CLONIDINE [Concomitant]
     Indication: PANIC ATTACK
     Route: 048
     Dates: start: 201201
  14. CETIRIZINE HCL [Concomitant]
     Indication: HYPERSENSITIVITY
     Dosage: 10 MG
     Route: 048
     Dates: start: 2010
  15. RANITIDINE [Concomitant]
     Indication: GASTROOESOPHAGEAL REFLUX DISEASE
     Dosage: 300 MG
     Route: 048
     Dates: start: 2007
  16. LEVOTHYROXINE [Concomitant]
     Indication: HYPOTHYROIDISM
     Dosage: 25 MCG
     Route: 048
     Dates: start: 1964
  17. DILTIAZEM [Concomitant]
     Indication: HYPERTENSION
     Dosage: 240 MG
     Route: 048
     Dates: start: 1992
  18. DILTIAZEM [Concomitant]
     Dosage: (CAPSULE) STRENGTH: 300 MG; DAILY DOSE: 300 MG
     Route: 048
     Dates: start: 1992

REACTIONS (5)
  - Atrial fibrillation [Recovered/Resolved]
  - Chest discomfort [Not Recovered/Not Resolved]
  - Throat irritation [Not Recovered/Not Resolved]
  - Rectal haemorrhage [Not Recovered/Not Resolved]
  - Oesophageal pain [Not Recovered/Not Resolved]
